FAERS Safety Report 15558295 (Version 4)
Quarter: 2019Q3

REPORT INFORMATION
  Report Type: Report from Study
  Country: None (occurrence: US)
  Receive Date: 20181028
  Receipt Date: 20190924
  Transmission Date: 20191004
  Serious: Yes (Hospitalization, Other)
  Sender: FDA-Public Use
  Company Number: US-ABBVIE-18K-163-2489652-00

PATIENT
  Age: 67 Year
  Sex: Female
  Weight: 53.57 kg

DRUGS (6)
  1. HUMIRA [Suspect]
     Active Substance: ADALIMUMAB
     Route: 058
     Dates: start: 20181010
  2. HUMIRA [Suspect]
     Active Substance: ADALIMUMAB
     Indication: CROHN^S DISEASE
     Route: 058
     Dates: start: 2002, end: 201802
  3. APRESOLINE HYDROCHLORIDE [Concomitant]
     Active Substance: HYDRALAZINE HYDROCHLORIDE
     Indication: CROHN^S DISEASE
  4. APRISO [Concomitant]
     Active Substance: MESALAMINE
     Indication: DYSPEPSIA
  5. HYOSCYAMINE. [Concomitant]
     Active Substance: HYOSCYAMINE
     Indication: ABDOMINAL PAIN
  6. OMEPRAZOLE. [Concomitant]
     Active Substance: OMEPRAZOLE
     Indication: GASTROOESOPHAGEAL REFLUX DISEASE

REACTIONS (9)
  - Abdominal pain [Recovered/Resolved]
  - Urinary tract infection [Recovered/Resolved]
  - Large intestinal stenosis [Recovered/Resolved]
  - Dehydration [Recovered/Resolved]
  - Therapeutic response shortened [Unknown]
  - Diarrhoea [Recovered/Resolved]
  - Intestinal obstruction [Recovering/Resolving]
  - Abdominal distension [Recovered/Resolved]
  - Vomiting [Recovering/Resolving]

NARRATIVE: CASE EVENT DATE: 201704
